FAERS Safety Report 21895214 (Version 1)
Quarter: 2023Q1

REPORT INFORMATION
  Report Type: Other
  Country: CA (occurrence: None)
  Receive Date: 20230123
  Receipt Date: 20230123
  Transmission Date: 20230418
  Serious: No
  Sender: FDA-Public Use
  Company Number: CA-ROCHE-3223798

PATIENT
  Sex: Female

DRUGS (2)
  1. OCREVUS [Suspect]
     Active Substance: OCRELIZUMAB
     Indication: Relapsing-remitting multiple sclerosis
     Dosage: 300 MG AT DAY 0 AND 14, THEN 600 MG EVERY 6 MONTH
     Route: 042
     Dates: start: 20221116
  2. AMOXICILLIN [Concomitant]
     Active Substance: AMOXICILLIN
     Dosage: 1 TAB

REACTIONS (14)
  - Palatal disorder [Unknown]
  - Glossodynia [Unknown]
  - Paraesthesia [Recovered/Resolved]
  - Nasopharyngitis [Unknown]
  - Tooth infection [Unknown]
  - Infusion related reaction [Recovered/Resolved]
  - Diplopia [Unknown]
  - Dizziness [Unknown]
  - Swelling face [Unknown]
  - Pain in jaw [Unknown]
  - Middle ear effusion [Unknown]
  - Anxiety [Unknown]
  - Oropharyngeal pain [Recovered/Resolved]
  - Oral herpes [Not Recovered/Not Resolved]
